FAERS Safety Report 6653483-0 (Version None)
Quarter: 2010Q1

REPORT INFORMATION
  Report Type: 
  Country: None (occurrence: None)
  Receive Date: 20100323
  Receipt Date: 20100323
  Transmission Date: 20100710
  Serious: No
  Sender: FDA-Public Use
  Company Number: None

PATIENT
  Age: 62 Year
  Sex: Male

DRUGS (1)
  1. SKELAXIN [Suspect]
     Dates: start: 20080501, end: 20080716

REACTIONS (9)
  - BILE DUCT OBSTRUCTION [None]
  - CHILLS [None]
  - CHOLANGITIS [None]
  - EOSINOPHILIA [None]
  - JAUNDICE [None]
  - LIVER DISORDER [None]
  - PRURITUS [None]
  - PYREXIA [None]
  - RASH [None]
